FAERS Safety Report 4730109-4 (Version None)
Quarter: 2005Q3

REPORT INFORMATION
  Report Type: 
  Country: None (occurrence: None)
  Receive Date: 20050729
  Receipt Date: 20050729
  Transmission Date: 20060218
  Serious: Yes (Death)
  Sender: FDA-Public Use
  Company Number: None

PATIENT
  Age: 64 Year
  Sex: Female
  Weight: 78.4723 kg

DRUGS (7)
  1. CLOZAPINE [Suspect]
     Indication: BIPOLAR DISORDER
     Dosage: 100 MG QAM / 150MG QHS
  2. CLOZAPINE [Suspect]
     Indication: PSYCHOTIC DISORDER
     Dosage: 100 MG QAM / 150MG QHS
  3. DEPAKOTE [Concomitant]
  4. COLACE [Concomitant]
  5. LOPID [Concomitant]
  6. ZOLOFT [Concomitant]
  7. PROTONIX [Concomitant]

REACTIONS (1)
  - MYOCARDITIS [None]
